FAERS Safety Report 9240870 (Version 1)
Quarter: 2013Q2

REPORT INFORMATION
  Report Type: Report from Study
  Country: US (occurrence: US)
  Receive Date: 20130418
  Receipt Date: 20130418
  Transmission Date: 20140414
  Serious: Yes (Hospitalization)
  Sender: FDA-Public Use
  Company Number: US-009507513-1304USA008458

PATIENT
  Age: 64 Year
  Sex: Female

DRUGS (6)
  1. HEXADROL TABLETS [Suspect]
     Indication: METASTASES TO CENTRAL NERVOUS SYSTEM
     Dosage: UNK
     Route: 048
     Dates: start: 20110114
  2. ADO-TRASTUZUMAB EMTANSINE [Suspect]
     Indication: BREAST CANCER
     Dosage: 334 MG, 1 IN 21 D
     Route: 042
     Dates: start: 20101006, end: 20110118
  3. CELEXA [Concomitant]
     Indication: DEPRESSION
     Dosage: UNK
     Dates: start: 200208
  4. CITRICAL [Concomitant]
  5. MAGNESIUM (UNSPECIFIED) [Concomitant]
  6. CENTRUM SILVER [Concomitant]

REACTIONS (2)
  - Hepatic encephalopathy [Recovered/Resolved]
  - Mental status changes [Recovered/Resolved]
